FAERS Safety Report 11493452 (Version 1)
Quarter: 2015Q3

REPORT INFORMATION
  Report Type: Spontaneous
  Country: US (occurrence: None)
  Receive Date: 20150910
  Receipt Date: 20150910
  Transmission Date: 20151125
  Serious: No
  Sender: FDA-Public Use
  Company Number: None

PATIENT
  Age: 46 Year
  Sex: Male

DRUGS (1)
  1. TESTOSTERONE CYP [Suspect]
     Active Substance: TESTOSTERONE CYPIONATE
     Indication: BLOOD TESTOSTERONE DECREASED
     Dosage: 150MG, Q2WKS
     Route: 030
     Dates: start: 201505

REACTIONS (5)
  - Nausea [None]
  - Injection site pain [None]
  - Product gel formation [None]
  - Injection site swelling [None]
  - Injection site erythema [None]

NARRATIVE: CASE EVENT DATE: 2015
